FAERS Safety Report 5709177-9 (Version None)
Quarter: 2008Q2

REPORT INFORMATION
  Report Type: 
  Country: None (occurrence: None)
  Receive Date: 20080418
  Receipt Date: 20080408
  Transmission Date: 20081010
  Serious: Yes (Hospitalization)
  Sender: FDA-Public Use
  Company Number: US-TYCO HEALTHCARE/MALLINCKRODT-T200800660

PATIENT

DRUGS (16)
  1. METHADONE HCL [Suspect]
     Indication: PAIN
     Dates: start: 20050101, end: 20050301
  2. METHADONE HCL [Suspect]
     Dosage: 30 MG, QID
     Dates: start: 20050301, end: 20050101
  3. METHADONE HCL [Suspect]
     Dosage: 20 MG, QD
     Dates: start: 20050101, end: 20050501
  4. METHADONE HCL [Suspect]
     Dosage: 15 MG, QD
     Dates: start: 20050101, end: 20050101
  5. METHADONE HCL [Suspect]
     Dosage: 10 MG, QD
     Dates: start: 20050101, end: 20050101
  6. METHADONE HCL [Suspect]
     Dosage: 5 MG, QD
     Dates: start: 20050101, end: 20050101
  7. METHADONE HCL [Suspect]
     Dosage: 5 MG, QOD
     Dates: start: 20050816, end: 20050821
  8. ACTIQ [Suspect]
     Indication: PELVIC PAIN
     Dosage: 800 UG, BID
     Route: 002
     Dates: start: 20050101, end: 20050601
  9. ACTIQ [Suspect]
     Indication: PROCTALGIA
     Dosage: 2400 UG, QD
     Route: 002
     Dates: start: 20050622, end: 20050627
  10. ACTIQ [Suspect]
     Dosage: 1600 UG, QD
     Route: 002
     Dates: start: 20050628, end: 20050702
  11. ACTIQ [Suspect]
     Dosage: 400 UG, TID
     Route: 002
     Dates: start: 20050703, end: 20050707
  12. ACTIQ [Suspect]
     Dosage: 400 UG, BID
     Route: 002
     Dates: start: 20050708, end: 20050712
  13. ACTIQ [Suspect]
     Dosage: 400 UG, QD
     Route: 002
     Dates: start: 20050713, end: 20050715
  14. DURAGESIC-100 [Suspect]
     Indication: PELVIC PAIN
     Dosage: 50 MG, TID
     Route: 062
     Dates: start: 20050601
  15. DURAGESIC-100 [Suspect]
     Indication: PROCTALGIA
  16. CLONAZEPAM [Concomitant]

REACTIONS (11)
  - ABDOMINAL PAIN [None]
  - DENTAL CARIES [None]
  - DEPRESSION [None]
  - DRUG DEPENDENCE [None]
  - DRUG WITHDRAWAL SYNDROME [None]
  - FORMICATION [None]
  - HYPERHIDROSIS [None]
  - INSOMNIA [None]
  - RHINORRHOEA [None]
  - SUICIDAL BEHAVIOUR [None]
  - TOOTH DECALCIFICATION [None]
